FAERS Safety Report 7552161-3 (Version None)
Quarter: 2011Q2

REPORT INFORMATION
  Report Type: 
  Country: None (occurrence: None)
  Receive Date: 20110616
  Receipt Date: 20110608
  Transmission Date: 20111010
  Serious: Yes (Hospitalization)
  Sender: FDA-Public Use
  Company Number: JP-MERCK-1104USA01453

PATIENT
  Age: 64 Year
  Sex: Female

DRUGS (9)
  1. LIPIDIL [Concomitant]
     Indication: HYPERLIPIDAEMIA
     Route: 065
     Dates: start: 20071204, end: 20110221
  2. JANUVIA [Suspect]
     Indication: TYPE 2 DIABETES MELLITUS
     Route: 048
     Dates: start: 20100929, end: 20101208
  3. METFORMIN HCL [Concomitant]
     Route: 065
     Dates: start: 20100430, end: 20110221
  4. AMARYL [Concomitant]
     Route: 065
     Dates: start: 20090509, end: 20101227
  5. METFORMIN HCL [Concomitant]
     Indication: TYPE 2 DIABETES MELLITUS
     Route: 065
     Dates: start: 20071204
  6. AMARYL [Concomitant]
     Route: 065
     Dates: start: 20101228, end: 20110221
  7. ACTOS [Concomitant]
     Indication: TYPE 2 DIABETES MELLITUS
     Route: 065
     Dates: start: 20080723, end: 20080826
  8. ACTOS [Concomitant]
     Route: 065
     Dates: start: 20080827, end: 20110221
  9. AMARYL [Concomitant]
     Indication: TYPE 2 DIABETES MELLITUS
     Route: 065
     Dates: start: 20071204, end: 20090508

REACTIONS (1)
  - PANCREATIC ABSCESS [None]
